FAERS Safety Report 7641847-8 (Version None)
Quarter: 2011Q3

REPORT INFORMATION
  Report Type: 
  Country: None (occurrence: None)
  Receive Date: 20110728
  Receipt Date: 20110725
  Transmission Date: 20111222
  Serious: Yes (Other)
  Sender: FDA-Public Use
  Company Number: BR-ROCHE-786651

PATIENT
  Sex: Female
  Weight: 70 kg

DRUGS (3)
  1. CLONAZEPAM [Suspect]
     Indication: SLEEP DISORDER THERAPY
     Route: 065
     Dates: start: 20110401
  2. CITALOPRAM HYDROBROMIDE [Suspect]
     Indication: NERVOUS SYSTEM DISORDER
     Route: 065
     Dates: start: 20110601, end: 20110601
  3. ENALAPRIL MALEATE [Concomitant]
     Dates: start: 20080101

REACTIONS (5)
  - BODY TEMPERATURE DECREASED [None]
  - DECREASED APPETITE [None]
  - SOMNOLENCE [None]
  - DIZZINESS [None]
  - MALAISE [None]
